FAERS Safety Report 11844931 (Version 3)
Quarter: 2016Q2

REPORT INFORMATION
  Report Type: Report from Study
  Country: US (occurrence: US)
  Receive Date: 20151217
  Receipt Date: 20160519
  Transmission Date: 20160815
  Serious: Yes (Hospitalization, Other)
  Sender: FDA-Public Use
  Company Number: US-BAYER-2015-422803

PATIENT
  Age: 69 Year
  Sex: Female
  Weight: 127.89 kg

DRUGS (9)
  1. ADEMPAS [Suspect]
     Active Substance: RIOCIGUAT
     Indication: PULMONARY ARTERIAL HYPERTENSION
     Dosage: TOTAL 4.5 MG DAILY
     Route: 048
  2. ADEMPAS [Suspect]
     Active Substance: RIOCIGUAT
     Indication: PULMONARY ARTERIAL HYPERTENSION
     Dosage: 1 MG TID
     Route: 048
  3. ADEMPAS [Suspect]
     Active Substance: RIOCIGUAT
     Indication: PULMONARY ARTERIAL HYPERTENSION
     Dosage: 0.5 MG, TID
     Route: 048
  4. ADEMPAS [Suspect]
     Active Substance: RIOCIGUAT
     Indication: PULMONARY ARTERIAL HYPERTENSION
     Dosage: 0.5 MG, TID (LAST SHIPPED 06-OCT-2015)
     Route: 048
     Dates: start: 20150827
  5. ADEMPAS [Suspect]
     Active Substance: RIOCIGUAT
     Indication: PULMONARY ARTERIAL HYPERTENSION
     Dosage: 2.5 MG, TID
     Route: 048
  6. WARFARIN [Concomitant]
     Active Substance: WARFARIN
     Dosage: UNK
  7. ADEMPAS [Suspect]
     Active Substance: RIOCIGUAT
     Indication: PULMONARY ARTERIAL HYPERTENSION
     Dosage: 0.5 MG, TID (LAST SHIPPED 27-AUG-2015)
     Route: 048
     Dates: start: 20150827
  8. ADEMPAS [Suspect]
     Active Substance: RIOCIGUAT
     Indication: PULMONARY ARTERIAL HYPERTENSION
     Dosage: 2.5 MG, TID
     Route: 048
  9. CORTISONE [Concomitant]
     Active Substance: CORTISONE\HYDROCORTISONE
     Dosage: UNK

REACTIONS (28)
  - Diarrhoea [Recovered/Resolved]
  - Influenza [None]
  - Alopecia [Unknown]
  - Sleep disorder [Unknown]
  - Blood pressure systolic decreased [Unknown]
  - Haemoptysis [Unknown]
  - Constipation [Unknown]
  - Headache [Not Recovered/Not Resolved]
  - Nasopharyngitis [Unknown]
  - Sinusitis [Unknown]
  - Weight increased [Unknown]
  - Sinus congestion [Unknown]
  - Productive cough [Unknown]
  - Rhinorrhoea [Unknown]
  - Pain [Unknown]
  - Gastric bypass [Unknown]
  - Headache [Recovered/Resolved]
  - Cough [Unknown]
  - Nasal congestion [Unknown]
  - Asthenia [None]
  - Nervousness [None]
  - Hypotension [Unknown]
  - Joint swelling [Unknown]
  - Dizziness [Unknown]
  - Arthropathy [Unknown]
  - Nervousness [None]
  - Bladder disorder [Unknown]
  - Nephrolithiasis [None]

NARRATIVE: CASE EVENT DATE: 201604
